FAERS Safety Report 10081575 (Version 1)
Quarter: 2014Q2

REPORT INFORMATION
  Report Type: Other
  Country: US (occurrence: US)
  Receive Date: 20140416
  Receipt Date: 20140416
  Transmission Date: 20141212
  Serious: Yes (Death)
  Sender: FDA-Public Use
  Company Number: US-ENDO PHARMACEUTICALS INC.-AMIT20140018

PATIENT
  Age: 9 Month
  Sex: Male

DRUGS (2)
  1. AMITRIPTYLINE HCL 50MG [Suspect]
     Indication: ACCIDENTAL OVERDOSE
     Dosage: UNKNOWN
     Route: 048
  2. BENADRYL [Suspect]
     Indication: ACCIDENTAL OVERDOSE
     Dosage: UNKNOWN
     Route: 048

REACTIONS (1)
  - Toxicity to various agents [Fatal]
